FAERS Safety Report 11510856 (Version 3)
Quarter: 2015Q4

REPORT INFORMATION
  Report Type: Spontaneous
  Country: JP (occurrence: JP)
  Receive Date: 20150915
  Receipt Date: 20151013
  Transmission Date: 20160304
  Serious: Yes (Other)
  Sender: FDA-Public Use
  Company Number: JP-PFIZER INC-2015297034

PATIENT
  Age: 72 Year
  Sex: Male
  Weight: 55 kg

DRUGS (4)
  1. LUNESTA [Concomitant]
     Active Substance: ESZOPICLONE
     Dosage: 1 MG, 1X/DAY
     Route: 048
     Dates: start: 20131028
  2. LANSOPRAZOLE. [Suspect]
     Active Substance: LANSOPRAZOLE
     Indication: GASTROOESOPHAGEAL REFLUX DISEASE
     Dosage: 15 MG, 1X/DAY
     Route: 048
     Dates: start: 20150817
  3. LYRICA [Suspect]
     Active Substance: PREGABALIN
     Indication: HYPOAESTHESIA
     Dosage: UNK
     Route: 048
     Dates: start: 20150824, end: 20150827
  4. FERROSTEC [Suspect]
     Active Substance: SODIUM FERROUS CITRATE
     Indication: IRON DEFICIENCY ANAEMIA
     Dosage: 50 MG, 2X/DAY
     Route: 048
     Dates: start: 20150618

REACTIONS (4)
  - Tachycardia [Unknown]
  - Nausea [Recovered/Resolved]
  - Atrial fibrillation [Recovered/Resolved]
  - Urticaria [Recovered/Resolved]

NARRATIVE: CASE EVENT DATE: 20150825
